FAERS Safety Report 19628240 (Version 7)
Quarter: 2024Q2

REPORT INFORMATION
  Report Type: Report from Study
  Country: US (occurrence: US)
  Receive Date: 20210729
  Receipt Date: 20240413
  Transmission Date: 20240715
  Serious: Yes (Hospitalization, Other)
  Sender: FDA-Public Use
  Company Number: US-TAKEDA-2021TUS045654

PATIENT
  Sex: Male
  Weight: 63 kg

DRUGS (51)
  1. HUMAN IMMUNOGLOBULIN G [Suspect]
     Active Substance: HUMAN IMMUNOGLOBULIN G
     Indication: Congenital hypogammaglobulinaemia
     Dosage: 40 GRAM, Q4WEEKS
     Route: 042
     Dates: start: 20170208
  2. HUMAN IMMUNOGLOBULIN G [Suspect]
     Active Substance: HUMAN IMMUNOGLOBULIN G
     Indication: Congenital hypogammaglobulinaemia
     Dosage: 40 GRAM, Q4WEEKS
     Route: 042
     Dates: start: 20170208
  3. HUMAN IMMUNOGLOBULIN G [Suspect]
     Active Substance: HUMAN IMMUNOGLOBULIN G
     Indication: Immune system disorder
     Dosage: 50 GRAM, Q4WEEKS
     Route: 042
     Dates: start: 20170302
  4. HUMAN IMMUNOGLOBULIN G [Suspect]
     Active Substance: HUMAN IMMUNOGLOBULIN G
     Indication: Immune system disorder
     Dosage: 50 GRAM, Q4WEEKS
     Route: 042
     Dates: start: 20170302
  5. HUMAN IMMUNOGLOBULIN G [Suspect]
     Active Substance: HUMAN IMMUNOGLOBULIN G
     Dosage: 50 GRAM, Q4WEEKS
     Route: 042
     Dates: start: 20220524
  6. HUMAN IMMUNOGLOBULIN G [Suspect]
     Active Substance: HUMAN IMMUNOGLOBULIN G
     Dosage: 50 GRAM, Q4WEEKS
     Route: 042
     Dates: start: 20220524
  7. HUMAN IMMUNOGLOBULIN G [Suspect]
     Active Substance: HUMAN IMMUNOGLOBULIN G
     Dosage: 35 GRAM, Q4WEEKS
     Route: 042
  8. HUMAN IMMUNOGLOBULIN G [Suspect]
     Active Substance: HUMAN IMMUNOGLOBULIN G
     Dosage: 35 GRAM, Q4WEEKS
     Route: 042
  9. HUMAN IMMUNOGLOBULIN G [Suspect]
     Active Substance: HUMAN IMMUNOGLOBULIN G
     Dosage: 60 GRAM, Q4WEEKS
     Route: 042
  10. HUMAN IMMUNOGLOBULIN G [Suspect]
     Active Substance: HUMAN IMMUNOGLOBULIN G
     Dosage: 60 GRAM, Q4WEEKS
     Route: 042
  11. HUMAN IMMUNOGLOBULIN G [Suspect]
     Active Substance: HUMAN IMMUNOGLOBULIN G
     Dosage: 60 GRAM, Q3WEEKS
     Route: 042
  12. HUMAN IMMUNOGLOBULIN G [Suspect]
     Active Substance: HUMAN IMMUNOGLOBULIN G
     Dosage: 60 GRAM, Q3WEEKS
     Route: 042
  13. ACETAMINOPHEN [Concomitant]
     Active Substance: ACETAMINOPHEN
     Dosage: UNK
     Route: 065
  14. DIPHENHYDRAMINE HYDROCHLORIDE [Concomitant]
     Active Substance: DIPHENHYDRAMINE HYDROCHLORIDE
     Dosage: UNK
  15. DIPHENHYDRAMINE [Concomitant]
     Active Substance: DIPHENHYDRAMINE
     Dosage: UNK
     Route: 065
  16. HEPARIN [Concomitant]
     Active Substance: HEPARIN SODIUM
     Dosage: UNK
     Route: 065
  17. LIDOCAINE\PRILOCAINE [Concomitant]
     Active Substance: LIDOCAINE\PRILOCAINE
     Dosage: UNK
     Route: 065
  18. ZYRTEC [Concomitant]
     Active Substance: CETIRIZINE HYDROCHLORIDE
     Dosage: UNK
     Route: 065
  19. SODIUM CHLORIDE [Concomitant]
     Active Substance: SODIUM CHLORIDE
     Dosage: UNK
     Route: 065
  20. EPINEPHRINE [Concomitant]
     Active Substance: EPINEPHRINE
     Dosage: UNK
     Route: 065
  21. ACTIMMUNE [Concomitant]
     Active Substance: INTERFERON GAMMA-1B
     Dosage: UNK
     Route: 065
  22. MOXIFLOXACIN [Concomitant]
     Active Substance: MOXIFLOXACIN
     Dosage: UNK
     Route: 065
  23. TEFLARO [Concomitant]
     Active Substance: CEFTAROLINE FOSAMIL
     Dosage: UNK
     Route: 065
  24. LINEZOLID [Concomitant]
     Active Substance: LINEZOLID
     Dosage: UNK
     Route: 065
  25. VITAMIN B6 [Concomitant]
     Active Substance: PYRIDOXINE HYDROCHLORIDE
     Dosage: UNK
     Route: 065
  26. BACTRIM [Concomitant]
     Active Substance: SULFAMETHOXAZOLE\TRIMETHOPRIM
     Dosage: UNK
     Route: 065
  27. SIRTURO [Concomitant]
     Active Substance: BEDAQUILINE FUMARATE
     Dosage: UNK
     Route: 065
  28. RIFABUTIN [Concomitant]
     Active Substance: RIFABUTIN
     Dosage: UNK
     Route: 065
  29. K PHOS NEUTRAL [Concomitant]
     Active Substance: POTASSIUM PHOSPHATE, MONOBASIC\SODIUM PHOSPHATE, DIBASIC, ANHYDROUS\SODIUM PHOSPHATE, MONOBASIC, MON
     Dosage: UNK
     Route: 065
  30. NUZYRA [Concomitant]
     Active Substance: OMADACYCLINE
     Dosage: UNK
     Route: 065
  31. TYLENOL [Concomitant]
     Active Substance: ACETAMINOPHEN
     Dosage: UNK
     Route: 065
  32. DEXAMETHASONE [Concomitant]
     Active Substance: DEXAMETHASONE
     Dosage: UNK
     Route: 065
  33. Lmx [Concomitant]
     Dosage: UNK
     Route: 065
  34. PFIZER-BIONTECH COVID-19 VACCINE [Concomitant]
     Active Substance: TOZINAMERAN
     Dosage: UNK
     Route: 065
  35. PENICILLIN [Concomitant]
     Active Substance: PENICILLIN
     Dosage: UNK
     Route: 065
  36. CLOFAZIMINE [Concomitant]
     Active Substance: CLOFAZIMINE
     Dosage: UNK
     Route: 065
  37. ETHAMBUTOL [Concomitant]
     Active Substance: ETHAMBUTOL HYDROCHLORIDE
     Dosage: UNK
     Route: 065
  38. AZITHROMYCIN [Concomitant]
     Active Substance: AZITHROMYCIN
     Dosage: UNK
     Route: 065
  39. MEROPENEM [Concomitant]
     Active Substance: MEROPENEM
     Dosage: UNK
  40. PENTAMIDINE ISETHIONATE [Concomitant]
     Active Substance: PENTAMIDINE ISETHIONATE
     Dosage: UNK
     Route: 065
  41. ACYCLOVIR [Concomitant]
     Active Substance: ACYCLOVIR
     Dosage: UNK
     Route: 065
  42. KEPPRA [Concomitant]
     Active Substance: LEVETIRACETAM
     Dosage: UNK
     Route: 065
  43. PANTOPRAZOLE SODIUM [Concomitant]
     Active Substance: PANTOPRAZOLE SODIUM
     Dosage: UNK
     Route: 065
  44. K PHOS NEUTRAL [Concomitant]
     Active Substance: POTASSIUM PHOSPHATE, MONOBASIC\SODIUM PHOSPHATE, DIBASIC, ANHYDROUS\SODIUM PHOSPHATE, MONOBASIC, MON
     Dosage: UNK
     Route: 065
  45. HYDROCORTISONE [Concomitant]
     Active Substance: HYDROCORTISONE
     Dosage: UNK
     Route: 065
  46. CRESEMBA [Concomitant]
     Active Substance: ISAVUCONAZONIUM SULFATE
     Dosage: UNK
     Route: 065
  47. URSODIOL [Concomitant]
     Active Substance: URSODIOL
     Dosage: UNK
     Route: 065
  48. VITAMIN D3 [Concomitant]
     Active Substance: CHOLECALCIFEROL
     Dosage: UNK
     Route: 065
  49. PREVYMIS [Concomitant]
     Active Substance: LETERMOVIR
     Dosage: UNK
     Route: 065
  50. Omega [Concomitant]
     Dosage: UNK
  51. VITAMIN B [Concomitant]
     Active Substance: VITAMIN B
     Dosage: UNK

REACTIONS (3)
  - Portal vein dilatation [Unknown]
  - Fungal infection [Unknown]
  - Skin lesion [Unknown]
